FAERS Safety Report 23039784 (Version 4)
Quarter: 2023Q4

REPORT INFORMATION
  Report Type: Spontaneous
  Country: DE (occurrence: DE)
  Receive Date: 20231006
  Receipt Date: 20231226
  Transmission Date: 20240110
  Serious: Yes (Hospitalization, Other)
  Sender: FDA-Public Use
  Company Number: DE-SAMSUNG BIOEPIS-SB-2023-25218

PATIENT
  Age: 70 Year
  Sex: Male
  Weight: 55 kg

DRUGS (8)
  1. OXALIPLATIN [Suspect]
     Active Substance: OXALIPLATIN
     Indication: Oesophageal adenocarcinoma
     Dosage: FORM OF ADMIN. - UNKNOWN (OTHER/UNSPECIFIED)?ROUTE OF ADMIN. INTRAVENOUS (NOT OTHERWISE SPECIFIED) (
     Dates: start: 20230802, end: 20230914
  2. LEUCOVORIN [Suspect]
     Active Substance: LEUCOVORIN\LEUCOVORIN CALCIUM
     Indication: Oesophageal adenocarcinoma
     Dosage: FORM OF ADMIN. - UNKNOWN (OTHER/UNSPECIFIED)?ROUTE OF ADMIN. INTRAVENOUS (NOT OTHERWISE SPECIFIED) (
     Dates: start: 20230802, end: 20230914
  3. PEMBROLIZUMAB [Suspect]
     Active Substance: PEMBROLIZUMAB
     Indication: Oesophageal adenocarcinoma
     Dosage: 200 MG FLAT DOSE, IV D1/D22/D43 PRE AND POST OP, AFTERWARDS D1 Q3?FORM OF ADMIN. UNKNOWN (OTHER/UNSP
     Dates: start: 20230802, end: 20230914
  4. DOCETAXEL [Suspect]
     Active Substance: DOCETAXEL\DOCETAXEL ANHYDROUS
     Indication: Oesophageal adenocarcinoma
     Dosage: 50 MG/M2, IV, D1/D15/D29 AND D43 PRE- AND POST OP?FORM OF ADMIN. UNKNOWN (OTHER/UNSPECIFIED) ?ROUTE
     Dates: start: 20230802, end: 20230914
  5. FLUOROURACIL [Suspect]
     Active Substance: FLUOROURACIL
     Indication: Oesophageal adenocarcinoma
     Dosage: 2600 MG/M2, IV, D1/D15/D29 AND D43 PRE- AND POST OP?FORM OF ADMIN. UNKNOWN (OTHER/UNSPECIFIED) ?ROUT
     Dates: start: 20230802, end: 20230831
  6. ONTRUZANT [Suspect]
     Active Substance: TRASTUZUMAB-DTTB
     Indication: Oesophageal adenocarcinoma
     Dosage: FORM OF ADMIN. - UNKNOWN (OTHER/UNSPECIFIED)?ROUTE OF ADMIN. INTRAVENOUS (NOT OTHERWISE SPECIFIED) (
     Dates: start: 20230802, end: 20230914
  7. ONTRUZANT [Suspect]
     Active Substance: TRASTUZUMAB-DTTB
     Dosage: D1?FORM OF ADMIN. UNKNOWN (OTHER/UNSPECIFIED) ?ROUTE OF ADMIN. INTRAVENOUS (NOT OTHERWISE SPECIFIED)
     Dates: start: 20230802
  8. ONTRUZANT [Suspect]
     Active Substance: TRASTUZUMAB-DTTB
     Dosage: DOSE: 414 MG, D22/D43?FORM OF ADMIN. UNKNOWN (OTHER/UNSPECIFIED) ?ROUTE OF ADMIN. INTRAVENOUS (NOT O
     Dates: start: 20230914

REACTIONS (6)
  - Chills [Recovered/Resolved]
  - Pyrexia [Recovered/Resolved]
  - Gastrointestinal anastomotic leak [Recovered/Resolved]
  - Pleural effusion [Recovered/Resolved]
  - Neutropenia [Unknown]
  - Product use in unapproved indication [Unknown]

NARRATIVE: CASE EVENT DATE: 20230914
